FAERS Safety Report 10030218 (Version 1)
Quarter: 2014Q1

REPORT INFORMATION
  Report Type: Spontaneous
  Country: US (occurrence: US)
  Receive Date: 20140323
  Receipt Date: 20140323
  Transmission Date: 20141002
  Serious: No
  Sender: FDA-Public Use
  Company Number: US-ALLERGAN-1309533US

PATIENT
  Age: 32 Year
  Sex: Female

DRUGS (6)
  1. LATISSE 0.03% [Suspect]
     Indication: GROWTH OF EYELASHES
     Dosage: 1 GTT, QHS
     Route: 061
  2. LATISSE 0.03% [Suspect]
     Dosage: 1 GTT, UNK
     Route: 061
  3. LATISSE 0.03% [Suspect]
     Dosage: 1 GTT, QHS
     Route: 061
  4. BIRTH CONTROL PILLS [Concomitant]
     Indication: CONTRACEPTION
     Dosage: UNK, QD
     Route: 048
  5. AMOXICILLIN [Concomitant]
     Indication: NASOPHARYNGITIS
  6. Z -PACK [Concomitant]
     Indication: NASOPHARYNGITIS

REACTIONS (6)
  - Wrong technique in drug usage process [Unknown]
  - Inappropriate schedule of drug administration [Unknown]
  - Wrong technique in drug usage process [Unknown]
  - Madarosis [Unknown]
  - Madarosis [Unknown]
  - Trichorrhexis [Unknown]
